FAERS Safety Report 9772029 (Version 4)
Quarter: 2014Q1

REPORT INFORMATION
  Report Type: Report from Study
  Country: US (occurrence: US)
  Receive Date: 20131219
  Receipt Date: 20140214
  Transmission Date: 20141002
  Serious: Yes (Life-Threatening, Hospitalization)
  Sender: FDA-Public Use
  Company Number: US-MYLANLABS-2013S1027675

PATIENT
  Age: 4 Year
  Sex: Male
  Weight: 15.2 kg

DRUGS (12)
  1. MONOCLONAL ANTIBODIES [Suspect]
     Indication: NEUROBLASTOMA
     Route: 042
     Dates: start: 20131007, end: 20131010
  2. INTERLEUKIN-2 [Suspect]
     Indication: NEUROBLASTOMA
     Route: 042
     Dates: start: 20130909, end: 20130912
  3. ISOTRETINOIN CAPSULES [Suspect]
     Indication: NEUROBLASTOMA
     Route: 048
     Dates: start: 20131111, end: 20131125
  4. ISOTRETINOIN CAPSULES [Suspect]
     Indication: OFF LABEL USE
     Route: 048
     Dates: start: 20131111, end: 20131125
  5. GRANULOCYTE MACROPHAGE COLONY STIM FACTOR [Suspect]
     Indication: NEUROBLASTOMA
     Route: 058
     Dates: start: 20131004, end: 20131017
  6. ACICLOVIR [Concomitant]
     Indication: PROPHYLAXIS
     Dosage: 400MG (200MG, 2 IN 1 DAY)
     Route: 048
     Dates: start: 20130816
  7. CYPROHEPTADINE [Concomitant]
     Indication: INCREASED APPETITE
     Dosage: 4MG (2MG, 2 IN 1 DAY)
     Route: 048
     Dates: start: 20130412
  8. MULTIVITAMIN [Concomitant]
     Indication: NUTRITIONAL SUPPLEMENTATION
     Route: 048
     Dates: start: 20130412
  9. LEVETIRACETAM [Concomitant]
     Indication: CONVULSION
     Dosage: 300MG (150MG, 2 IN 1 DAY)
     Route: 048
     Dates: start: 20130415
  10. FLUCONAZOLE [Concomitant]
     Indication: PROPHYLAXIS
     Route: 048
     Dates: start: 20130829
  11. DOCUSATE [Concomitant]
     Indication: CONSTIPATION
     Dosage: 30MG , 2 IN 1 DAY
     Route: 048
     Dates: start: 20130530
  12. PARACETAMOL [Concomitant]
     Indication: PYREXIA
     Route: 048

REACTIONS (1)
  - Sepsis [Recovered/Resolved]
